FAERS Safety Report 6910093-5 (Version None)
Quarter: 2010Q3

REPORT INFORMATION
  Report Type: 
  Country: None (occurrence: None)
  Receive Date: 20100806
  Receipt Date: 20100802
  Transmission Date: 20110219
  Serious: Yes (Death, Other)
  Sender: FDA-Public Use
  Company Number: US-BAXTER-2010BH014580

PATIENT
  Age: 14 Year
  Sex: Male

DRUGS (1)
  1. GAMMAGARD LIQUID [Suspect]
     Indication: B-LYMPHOCYTE ABNORMALITIES
     Route: 042
     Dates: start: 20100521, end: 20100521

REACTIONS (3)
  - ANTI-HBC IGG ANTIBODY POSITIVE [None]
  - CEREBRAL HAEMORRHAGE [None]
  - HEPATITIS [None]
